FAERS Safety Report 7277782-7 (Version None)
Quarter: 2011Q1

REPORT INFORMATION
  Report Type: 
  Country: None (occurrence: None)
  Receive Date: 20110207
  Receipt Date: 20101001
  Transmission Date: 20110831
  Serious: No
  Sender: FDA-Public Use
  Company Number: A0884511A

PATIENT
  Age: 30 Year
  Sex: Female

DRUGS (2)
  1. OLUX E [Suspect]
     Route: 061
  2. OLUX E [Suspect]
     Dosage: 1APP TWICE PER DAY
     Route: 061
     Dates: start: 20000101

REACTIONS (2)
  - HAIR DISORDER [None]
  - HAIR COLOUR CHANGES [None]
